FAERS Safety Report 8816187 (Version 1)
Quarter: 2012Q4

REPORT INFORMATION
  Report Type: 
  Country: US (occurrence: US)
  Receive Date: 20120929
  Receipt Date: 20120929
  Transmission Date: 20130627
  Serious: Yes (Other)
  Sender: FDA-Public Use
  Company Number: US-009507513-2012SP013581

PATIENT
  Sex: Male

DRUGS (1)
  1. DR. SCHOLL^S FREEZE AWAY COMMON + PLANTAR WART REMOVER [Suspect]
     Indication: PRODUCT USED FOR UNKNOWN INDICATION
     Dosage: UNK UNK, Unknown
     Route: 061

REACTIONS (5)
  - Blister [Unknown]
  - Device leakage [Unknown]
  - Accidental exposure to product [Unknown]
  - No therapeutic response [Unknown]
  - Expired drug administered [Unknown]
